FAERS Safety Report 24617685 (Version 1)
Quarter: 2024Q4

REPORT INFORMATION
  Report Type: Spontaneous
  Country: US (occurrence: US)
  Receive Date: 20241114
  Receipt Date: 20241114
  Transmission Date: 20250114
  Serious: Yes (Hospitalization, Other)
  Sender: RANBAXY
  Company Number: US-SUN PHARMACEUTICAL INDUSTRIES LTD-2024R1-478787

PATIENT
  Age: 66 Year
  Sex: Female

DRUGS (8)
  1. CETIRIZINE [Suspect]
     Active Substance: CETIRIZINE HYDROCHLORIDE
     Indication: Swollen tongue
     Dosage: 20 MILLIGRAM, BID
     Route: 065
  2. CETIRIZINE [Suspect]
     Active Substance: CETIRIZINE HYDROCHLORIDE
     Indication: Swelling face
  3. PREDNISONE [Suspect]
     Active Substance: PREDNISONE
     Indication: Swollen tongue
     Dosage: UNK
     Route: 065
  4. PREDNISONE [Suspect]
     Active Substance: PREDNISONE
     Indication: Swelling face
  5. MONTELUKAST [Suspect]
     Active Substance: MONTELUKAST
     Indication: Swollen tongue
     Dosage: UNK
     Route: 065
  6. MONTELUKAST [Suspect]
     Active Substance: MONTELUKAST
     Indication: Swelling face
  7. OMALIZUMAB [Suspect]
     Active Substance: OMALIZUMAB
     Indication: Swollen tongue
     Dosage: UNK
     Route: 065
  8. OMALIZUMAB [Suspect]
     Active Substance: OMALIZUMAB
     Indication: Swelling face

REACTIONS (2)
  - Lip swelling [Unknown]
  - Dysphagia [Unknown]
